FAERS Safety Report 8435197-X (Version None)
Quarter: 2012Q2

REPORT INFORMATION
  Report Type: 
  Country: None (occurrence: None)
  Receive Date: 20120614
  Receipt Date: 20120604
  Transmission Date: 20120825
  Serious: Yes (Other)
  Sender: FDA-Public Use
  Company Number: US-JNJFOC-20120603428

PATIENT
  Sex: Female
  Weight: 87.54 kg

DRUGS (6)
  1. ASPIRIN [Suspect]
     Indication: PAIN
     Route: 048
  2. FLEXERIL [Suspect]
     Indication: PAIN
     Route: 048
  3. NAPROXEN (ALEVE) [Suspect]
     Indication: PAIN
     Route: 048
  4. DURAGESIC-100 [Suspect]
     Indication: PAIN
     Route: 062
  5. LYRICA [Suspect]
     Indication: PAIN
     Route: 048
  6. SAVELLA [Suspect]
     Indication: PAIN
     Route: 048

REACTIONS (10)
  - HEART RATE INCREASED [None]
  - DYSPNOEA [None]
  - ANXIETY [None]
  - CHANGE OF BOWEL HABIT [None]
  - DEPRESSION [None]
  - THERAPEUTIC RESPONSE DECREASED [None]
  - MOOD ALTERED [None]
  - MENTAL IMPAIRMENT [None]
  - FATIGUE [None]
  - INSOMNIA [None]
